FAERS Safety Report 7070092-2 (Version None)
Quarter: 2010Q4

REPORT INFORMATION
  Report Type: 
  Country: None (occurrence: None)
  Receive Date: 20101028
  Receipt Date: 20100909
  Transmission Date: 20110411
  Serious: No
  Sender: FDA-Public Use
  Company Number: US-WYE-H17475410

PATIENT
  Sex: Female

DRUGS (1)
  1. ADVIL [Suspect]
     Indication: PAIN
     Dosage: TWO LIQUI-GELS ONCE
     Route: 048
     Dates: start: 20100907, end: 20100907

REACTIONS (2)
  - CAPSULE ISSUE [None]
  - ORAL DISCOMFORT [None]
